FAERS Safety Report 9390289 (Version 3)
Quarter: 2013Q3

REPORT INFORMATION
  Report Type: Spontaneous
  Country: US (occurrence: US)
  Receive Date: 20130709
  Receipt Date: 20130809
  Transmission Date: 20140515
  Serious: Yes (Other)
  Sender: FDA-Public Use
  Company Number: US-AMGEN-USASP2013047529

PATIENT
  Age: 36 Year
  Sex: Male
  Weight: 96.6 kg

DRUGS (1)
  1. ENBREL [Suspect]
     Indication: ANKYLOSING SPONDYLITIS
     Dosage: 50 MG, QWK
     Route: 065
     Dates: start: 20130430

REACTIONS (6)
  - Hypoacusis [Not Recovered/Not Resolved]
  - Ear pain [Not Recovered/Not Resolved]
  - Blister [Recovered/Resolved]
  - Middle ear effusion [Not Recovered/Not Resolved]
  - Otitis externa [Unknown]
  - Ear infection [Not Recovered/Not Resolved]
